FAERS Safety Report 8372417-4 (Version None)
Quarter: 2012Q2

REPORT INFORMATION
  Report Type: 
  Country: None (occurrence: None)
  Receive Date: 20120521
  Receipt Date: 20120507
  Transmission Date: 20120825
  Serious: No
  Sender: FDA-Public Use
  Company Number: US-B.I. PHARMACEUTICALS,INC./RIDGEFIELD-2011-BP-14755BP

PATIENT
  Age: 71 Year
  Sex: Male

DRUGS (13)
  1. FUROSEMIDE [Concomitant]
     Indication: HYPERTENSION
     Dosage: 20 MG
     Route: 048
     Dates: start: 20110301
  2. PRILOSEC [Concomitant]
     Indication: GASTROOESOPHAGEAL REFLUX DISEASE
     Dosage: 20 MG
     Route: 048
     Dates: start: 20100101
  3. GABAPENTIN [Concomitant]
     Indication: RESTLESS LEGS SYNDROME
     Dosage: 300 MG
     Route: 048
     Dates: start: 20100101
  4. TYLENOL [Concomitant]
     Indication: PAIN
     Dosage: 500 MG
  5. PRADAXA [Suspect]
     Indication: ATRIAL FIBRILLATION
     Dosage: 300 MG
     Route: 048
     Dates: start: 20110201, end: 20120501
  6. METOPROLOL [Concomitant]
     Indication: HYPERTENSION
     Dosage: 50 MG
     Route: 048
     Dates: start: 20060101
  7. DILTIAZEM [Concomitant]
     Indication: HYPERTENSION
     Dosage: 180 MG
     Route: 048
     Dates: start: 20110201
  8. PRAMIPEXOLE DIHYDROCHLORIDE [Concomitant]
     Indication: RESTLESS LEGS SYNDROME
     Dosage: 1 MG
     Route: 048
     Dates: start: 20100101
  9. PRAVASTATIN [Concomitant]
     Indication: BLOOD CHOLESTEROL INCREASED
     Dosage: 40 MG
  10. TYLENOL PM [Concomitant]
     Indication: PAIN
  11. HYDROCHLORTHIAZIDE [Concomitant]
  12. BUPROPION HCL [Concomitant]
     Dosage: 150 MG
     Route: 048
     Dates: start: 20000101
  13. KLOR-CON [Concomitant]
     Indication: HYPERTENSION
     Dosage: 20 MEQ
     Route: 048
     Dates: start: 20110301

REACTIONS (2)
  - VARICOSE VEIN [None]
  - CONTUSION [None]
